FAERS Safety Report 10554574 (Version 2)
Quarter: 2015Q1

REPORT INFORMATION
  Report Type: Spontaneous
  Country: US (occurrence: US)
  Receive Date: 20141030
  Receipt Date: 20150330
  Transmission Date: 20150720
  Serious: Yes (Hospitalization, Other)
  Sender: FDA-Public Use
  Company Number: US-GLAXOSMITHKLINE-US2014010433

PATIENT
  Sex: Female

DRUGS (3)
  1. COREG [Suspect]
     Active Substance: CARVEDILOL
     Indication: BLOOD PRESSURE
     Dosage: 1 DF, BID
     Route: 048
     Dates: start: 2010, end: 20141005
  2. ADVAIR DISKUS [Suspect]
     Active Substance: FLUTICASONE PROPIONATE\SALMETEROL XINAFOATE
     Indication: ASTHMA
     Dosage: 250/50, 1PUFF BID
     Route: 055
  3. LIPITOR [Concomitant]
     Active Substance: ATORVASTATIN CALCIUM

REACTIONS (9)
  - Cataract operation [Unknown]
  - Dental caries [Unknown]
  - Dysphonia [Unknown]
  - Aortic aneurysm repair [Unknown]
  - Cataract [Unknown]
  - Aortic aneurysm [Unknown]
  - Stent malfunction [Recovering/Resolving]
  - Osteoarthritis [Unknown]
  - Stent-graft endoleak [Recovering/Resolving]

NARRATIVE: CASE EVENT DATE: 2012
